FAERS Safety Report 4808484-1 (Version None)
Quarter: 2005Q4

REPORT INFORMATION
  Report Type: 
  Country: None (occurrence: None)
  Receive Date: 20051021
  Receipt Date: 20030728
  Transmission Date: 20060501
  Serious: No
  Sender: FDA-Public Use
  Company Number: DE_030711767

PATIENT
  Age: 45 Year
  Sex: Male
  Weight: 118 kg

DRUGS (6)
  1. ZYPREXA [Suspect]
     Indication: SCHIZOAFFECTIVE DISORDER
     Dosage: 20 MG/DAY
     Dates: start: 20030616, end: 20030701
  2. FAUSTAN (DIAZEPAM) [Concomitant]
  3. HALDOL ^JANSSEN-CILAG^ (HALOPERIDOL) [Concomitant]
  4. ATORVASTATIN CALCIUM [Concomitant]
  5. DELIX PLUS [Concomitant]
  6. ALLOPURINOL [Concomitant]

REACTIONS (5)
  - ALANINE AMINOTRANSFERASE INCREASED [None]
  - ASPARTATE AMINOTRANSFERASE INCREASED [None]
  - C-REACTIVE PROTEIN INCREASED [None]
  - GAMMA-GLUTAMYLTRANSFERASE INCREASED [None]
  - LEUKOCYTOSIS [None]
